FAERS Safety Report 4462458-1 (Version None)
Quarter: 2004Q3

REPORT INFORMATION
  Report Type: 
  Country: None (occurrence: None)
  Receive Date: 20040924
  Receipt Date: 20040910
  Transmission Date: 20050211
  Serious: Yes (Hospitalization)
  Sender: FDA-Public Use
  Company Number: 204545

PATIENT
  Age: 60 Year
  Sex: Male
  Weight: 96.1626 kg

DRUGS (5)
  1. AVONEX [Suspect]
     Indication: MULTIPLE SCLEROSIS
     Dosage: 30 MCG QW IM
     Route: 030
     Dates: start: 19990101, end: 20040101
  2. AVONEX [Suspect]
     Indication: MULTIPLE SCLEROSIS
     Dosage: 30 MCG QW IM
     Route: 030
     Dates: start: 20040101
  3. ZOCOR [Concomitant]
  4. LOTREL [Concomitant]
  5. LORAZEPAM [Concomitant]

REACTIONS (2)
  - DEPRESSION [None]
  - TRIGEMINAL NEURALGIA [None]
